FAERS Safety Report 13028989 (Version 1)
Quarter: 2016Q4

REPORT INFORMATION
  Report Type: Spontaneous
  Country: US (occurrence: US)
  Receive Date: 20161214
  Receipt Date: 20161214
  Transmission Date: 20170207
  Serious: No
  Sender: FDA-Public Use
  Company Number: US-009507513-1612USA004307

PATIENT
  Age: 60 Year
  Sex: Male

DRUGS (1)
  1. ZEPATIER [Suspect]
     Active Substance: ELBASVIR\GRAZOPREVIR
     Indication: CHRONIC HEPATITIS C
     Dosage: 1 DF, UNK
     Route: 048
     Dates: start: 20160607, end: 20160907

REACTIONS (3)
  - No adverse event [Unknown]
  - Treatment failure [Unknown]
  - Sustained viral response [Unknown]

NARRATIVE: CASE EVENT DATE: 2016
